FAERS Safety Report 8936639 (Version 3)
Quarter: 2013Q2

REPORT INFORMATION
  Report Type: Report from Study
  Country: FR (occurrence: FR)
  Receive Date: 20121130
  Receipt Date: 20130531
  Transmission Date: 20140414
  Serious: Yes (Disabling)
  Sender: FDA-Public Use
  Company Number: FR-ROCHE-1080191

PATIENT
  Sex: Male

DRUGS (2)
  1. SOMATROPIN [Suspect]
     Indication: GROWTH HORMONE DEFICIENCY
     Dosage: 10 MG/2 ML
     Route: 058
     Dates: start: 20100113, end: 20110124
  2. SOMATROPIN [Suspect]
     Dosage: 10 MG/2 ML?REDUCED DOSE
     Route: 058
     Dates: start: 201102

REACTIONS (1)
  - Migraine [Recovering/Resolving]
